FAERS Safety Report 4780094-4 (Version None)
Quarter: 2005Q3

REPORT INFORMATION
  Report Type: 
  Country: None (occurrence: None)
  Receive Date: 20050914
  Receipt Date: 20041025
  Transmission Date: 20060218
  Serious: Yes (Hospitalization, Other)
  Sender: FDA-Public Use
  Company Number: 163-20785-03040428

PATIENT
  Age: 71 Year
  Sex: Female

DRUGS (21)
  1. THALOMID [Suspect]
     Indication: MULTIPLE MYELOMA
     Dosage: 50-100 MG, QD, ORAL;  50 MG, QD M-W-F, ORAL
     Route: 048
     Dates: start: 20021021, end: 20030317
  2. THALOMID [Suspect]
     Indication: MULTIPLE MYELOMA
     Dosage: 50-100 MG, QD, ORAL;  50 MG, QD M-W-F, ORAL
     Route: 048
     Dates: start: 20030422
  3. DOXIL [Concomitant]
  4. VINCRISTINE [Concomitant]
  5. DECADRON [Concomitant]
  6. FLUDROCORTISONE ACETATE [Concomitant]
  7. GABAPENTIN [Concomitant]
  8. MORPHINE [Concomitant]
  9. ASPIRIN [Concomitant]
  10. SERTRALINE HCL [Concomitant]
  11. TAMOXIFEN [Concomitant]
  12. POTASSIUM CHLORIDE [Concomitant]
  13. METOPROLOL SUCCINATE [Concomitant]
  14. FUROSEMIDE [Concomitant]
  15. WARFARIN SODIUM [Concomitant]
  16. COLACE (DOCUSATE SODIUM) [Concomitant]
  17. MAGNESIUM HYDROXIDE TAB [Concomitant]
  18. ALDACTONE [Concomitant]
  19. FOLIC ACID [Concomitant]
  20. NEXIUM [Concomitant]
  21. THIAMINE [Concomitant]

REACTIONS (5)
  - ASTHENIA [None]
  - BREAST CANCER FEMALE [None]
  - COMPRESSION FRACTURE [None]
  - METASTATIC NEOPLASM [None]
  - PNEUMONIA [None]
